FAERS Safety Report 18432187 (Version 4)
Quarter: 2020Q4

REPORT INFORMATION
  Report Type: Report from Study
  Country: TR (occurrence: TR)
  Receive Date: 20201027
  Receipt Date: 20201103
  Transmission Date: 20210114
  Serious: Yes (Hospitalization)
  Sender: FDA-Public Use
  Company Number: TR-EISAI MEDICAL RESEARCH-EC-2020-082729

PATIENT
  Age: 52 Year
  Sex: Male
  Weight: 85 kg

DRUGS (8)
  1. URSACTIVE [Concomitant]
     Active Substance: URSODIOL
     Dates: start: 201906
  2. DIDERAL [Concomitant]
     Active Substance: PROPRANOLOL HYDROCHLORIDE
     Dates: start: 20191031
  3. LENVATINIB [Suspect]
     Active Substance: LENVATINIB
     Indication: HEPATOCELLULAR CARCINOMA
     Route: 048
     Dates: start: 20190916, end: 20201020
  4. PEMBROLIZUMAB. [Suspect]
     Active Substance: PEMBROLIZUMAB
     Indication: HEPATOCELLULAR CARCINOMA
     Route: 041
     Dates: start: 20190916, end: 20200909
  5. PEMBROLIZUMAB. [Suspect]
     Active Substance: PEMBROLIZUMAB
     Route: 041
     Dates: start: 20200928, end: 20200928
  6. QUANTAVIR [Concomitant]
     Dates: start: 201702
  7. CORASPIN [Concomitant]
     Active Substance: ASPIRIN
     Dates: start: 201702
  8. AERIUS [Concomitant]
     Dates: start: 201902

REACTIONS (2)
  - Gastrointestinal haemorrhage [Recovered/Resolved]
  - Blood bilirubin increased [Recovering/Resolving]

NARRATIVE: CASE EVENT DATE: 20201018
